FAERS Safety Report 22042752 (Version 3)
Quarter: 2023Q2

REPORT INFORMATION
  Report Type: Spontaneous
  Country: US (occurrence: US)
  Receive Date: 20230228
  Receipt Date: 20230502
  Transmission Date: 20230722
  Serious: No
  Sender: FDA-Public Use
  Company Number: US-BRISTOL-MYERS SQUIBB COMPANY-2023-028689

PATIENT
  Age: 40 Year
  Sex: Female
  Weight: 89 kg

DRUGS (2)
  1. REVLIMID [Suspect]
     Active Substance: LENALIDOMIDE
     Indication: Plasma cell myeloma
     Dosage: FREQ: DAILY FOR 14 DAYS THEN 7 DAYS OFF
     Route: 048
     Dates: start: 20230210, end: 20230218
  2. REVLIMID [Suspect]
     Active Substance: LENALIDOMIDE

REACTIONS (9)
  - Erythema [Recovering/Resolving]
  - Feeling hot [Recovering/Resolving]
  - Rash [Recovering/Resolving]
  - Hypersensitivity [Recovered/Resolved]
  - Urticaria [Recovering/Resolving]
  - Inflammation [Recovering/Resolving]
  - Off label use [Unknown]
  - Burning sensation [Recovered/Resolved]
  - Pruritus [Recovered/Resolved]

NARRATIVE: CASE EVENT DATE: 20230201
